FAERS Safety Report 14145409 (Version 1)
Quarter: 2017Q4

REPORT INFORMATION
  Report Type: Spontaneous
  Country: PT (occurrence: GB)
  Receive Date: 20171031
  Receipt Date: 20171031
  Transmission Date: 20180321
  Serious: Yes (Other)
  Sender: FDA-Public Use
  Company Number: PT-SUNOVION-2017SUN004688

PATIENT

DRUGS (12)
  1. ZEBINIX [Suspect]
     Active Substance: ESLICARBAZEPINE ACETATE
     Dosage: 800 MG, HS
     Route: 048
     Dates: start: 201702, end: 2017
  2. BRIVARACETAM [Concomitant]
     Active Substance: BRIVARACETAM
     Dosage: 50 MG, BID
     Route: 048
     Dates: start: 20170629
  3. ZEBINIX [Suspect]
     Active Substance: ESLICARBAZEPINE ACETATE
     Dosage: 800 MG, HS
     Route: 048
  4. ZEBINIX [Suspect]
     Active Substance: ESLICARBAZEPINE ACETATE
     Dosage: 600 MG, HS
     Route: 048
     Dates: start: 2017
  5. CLOBAZAM [Concomitant]
     Active Substance: CLOBAZAM
     Indication: FOCAL DYSCOGNITIVE SEIZURES
     Dosage: 10 MG, AS NECESSARY
     Route: 048
     Dates: start: 2016
  6. CLOBAZAM [Concomitant]
     Active Substance: CLOBAZAM
     Indication: SEIZURE CLUSTER
  7. ZEBINIX [Suspect]
     Active Substance: ESLICARBAZEPINE ACETATE
     Dosage: 1200 MG, HS
     Route: 048
     Dates: start: 2017, end: 2017
  8. MIDAZOLAM [Concomitant]
     Active Substance: MIDAZOLAM HYDROCHLORIDE
     Indication: SEIZURE CLUSTER
     Dosage: 10MG / 2ML, AS NECESSARY
     Route: 002
  9. ZEBINIX [Suspect]
     Active Substance: ESLICARBAZEPINE ACETATE
     Indication: PARTIAL SEIZURES
     Dosage: UNKNOWN
     Route: 065
     Dates: start: 20141117
  10. ZEBINIX [Suspect]
     Active Substance: ESLICARBAZEPINE ACETATE
     Indication: EPILEPSY
     Dosage: 400 MG, QD
     Route: 048
     Dates: start: 2017
  11. MIDAZOLAM [Concomitant]
     Active Substance: MIDAZOLAM HYDROCHLORIDE
     Indication: GENERALISED TONIC-CLONIC SEIZURE
  12. ZEBINIX [Suspect]
     Active Substance: ESLICARBAZEPINE ACETATE
     Dosage: 400 MG, EVERY MORNING
     Route: 048
     Dates: start: 201702

REACTIONS (21)
  - Feeling abnormal [Unknown]
  - Clumsiness [Unknown]
  - Balance disorder [Unknown]
  - Somnolence [Unknown]
  - Dysstasia [Unknown]
  - Coordination abnormal [Unknown]
  - Wrong technique in product usage process [Unknown]
  - Seizure [Unknown]
  - Anger [Not Recovered/Not Resolved]
  - Paraesthesia [Unknown]
  - Asthenia [Unknown]
  - Irritability [Not Recovered/Not Resolved]
  - Insomnia [Unknown]
  - Inappropriate schedule of drug administration [Unknown]
  - Frustration tolerance decreased [Not Recovered/Not Resolved]
  - Decreased appetite [Unknown]
  - Aggression [Unknown]
  - Disturbance in attention [Unknown]
  - Dizziness [Unknown]
  - Fatigue [Unknown]
  - Drug dose titration not performed [Unknown]

NARRATIVE: CASE EVENT DATE: 2012
